FAERS Safety Report 17269753 (Version 5)
Quarter: 2021Q4

REPORT INFORMATION
  Report Type: Report from Study
  Country: US (occurrence: US)
  Receive Date: 20200114
  Receipt Date: 20211215
  Transmission Date: 20220303
  Serious: No
  Sender: FDA-Public Use
  Company Number: NVSC2020US006256

PATIENT
  Sex: Male

DRUGS (2)
  1. COSENTYX [Suspect]
     Active Substance: SECUKINUMAB
     Indication: Psoriasis
     Dosage: 300 MG, QW(ONCE WEEKLY FOR 5 WEEKS, THEN EVERY 4 WEEKS)
     Route: 058
     Dates: start: 20190203
  2. COSENTYX [Suspect]
     Active Substance: SECUKINUMAB
     Dosage: 300 MG, QMO
     Route: 058
     Dates: start: 2019

REACTIONS (3)
  - Pigmentation disorder [Not Recovered/Not Resolved]
  - Product supply issue [Unknown]
  - Psoriasis [Not Recovered/Not Resolved]
